FAERS Safety Report 14967791 (Version 12)
Quarter: 2019Q4

REPORT INFORMATION
  Report Type: Spontaneous
  Country: US (occurrence: US)
  Receive Date: 20180604
  Receipt Date: 20191106
  Transmission Date: 20200122
  Serious: Yes (Hospitalization, Other)
  Sender: FDA-Public Use
  Company Number: US-PFIZER INC-2018224756

PATIENT
  Age: 61 Year
  Sex: Male

DRUGS (64)
  1. SYMBICORT [Concomitant]
     Active Substance: BUDESONIDE\FORMOTEROL FUMARATE DIHYDRATE
     Dosage: UNK, 160/4.5
     Dates: start: 2015
  2. VITAMIN C [Concomitant]
     Active Substance: ASCORBIC ACID
     Dosage: 1000 MG, 2X/DAY
     Route: 048
  3. NASONEX [Concomitant]
     Active Substance: MOMETASONE FUROATE
     Dosage: UNK
     Dates: start: 20150210
  4. DILANTIN [Suspect]
     Active Substance: PHENYTOIN
     Indication: EPILEPSY
     Dosage: 500 MG, DAILY
     Route: 048
     Dates: start: 20150216, end: 20150216
  5. ZARONTIN [Concomitant]
     Active Substance: ETHOSUXIMIDE
     Dosage: UNK, 3X/DAY
     Dates: start: 1999, end: 2015
  6. LAMICTAL [Concomitant]
     Active Substance: LAMOTRIGINE
     Dosage: UNK, 2X/DAY
     Dates: start: 2015, end: 2016
  7. PROTONIX [Concomitant]
     Active Substance: PANTOPRAZOLE SODIUM
     Dosage: UNK
     Dates: start: 2016
  8. PROAIR HFA [Concomitant]
     Active Substance: ALBUTEROL SULFATE
     Indication: WHEEZING
     Dosage: 2 DF, EVERY 4 HRS, AS NEEDED
     Dates: start: 20150212
  9. SPIRIVA [Concomitant]
     Active Substance: TIOTROPIUM BROMIDE MONOHYDRATE
     Indication: CHRONIC OBSTRUCTIVE PULMONARY DISEASE
     Dosage: 18 UG, DAILY
  10. VITAMIN B12 [Concomitant]
     Active Substance: CYANOCOBALAMIN
     Dosage: UNK
     Dates: start: 2014
  11. VITAMIN C [Concomitant]
     Active Substance: ASCORBIC ACID
     Dosage: 500 MG, DAILY
     Route: 048
  12. VITAMIN D3 [Concomitant]
     Active Substance: CHOLECALCIFEROL
     Dosage: UNK, DAILY
     Route: 048
  13. ATORVASTATIN [Concomitant]
     Active Substance: ATORVASTATIN
     Dosage: 20 MG, DAILY
  14. ZYRTEC [Concomitant]
     Active Substance: CETIRIZINE HYDROCHLORIDE
     Dosage: 10 MG, DAILY
  15. CLONAZEPAM. [Concomitant]
     Active Substance: CLONAZEPAM
     Dosage: 1.5 MG, UNK
  16. VARENICLINE [Concomitant]
     Active Substance: VARENICLINE
     Dosage: UNK, 2X/DAY
  17. ZARONTIN [Concomitant]
     Active Substance: ETHOSUXIMIDE
     Dosage: 500 MG, 3X/DAY, 500 MG Q2PM, 750 MG QPM
     Dates: start: 20150216, end: 20150216
  18. ZARONTIN [Concomitant]
     Active Substance: ETHOSUXIMIDE
     Dosage: UNK
     Dates: start: 1994
  19. PROAIR HFA [Concomitant]
     Active Substance: ALBUTEROL SULFATE
     Indication: CHRONIC OBSTRUCTIVE PULMONARY DISEASE
  20. CHERATUSSIN AC [Concomitant]
     Active Substance: CODEINE PHOSPHATE\GUAIFENESIN
     Dosage: 10 ML, EVERY 4 HRS, AS NEEDED
     Route: 048
     Dates: start: 20150217
  21. LOVASTATIN. [Concomitant]
     Active Substance: LOVASTATIN
     Dosage: 40 MG, DAILY
  22. ZYRTEC [Concomitant]
     Active Substance: CETIRIZINE HYDROCHLORIDE
     Dosage: 100 MG, DAILY
  23. DILANTIN [Suspect]
     Active Substance: PHENYTOIN
     Indication: EPILEPSY
     Dosage: UNK
     Route: 042
     Dates: start: 1967, end: 2015
  24. ZARONTIN [Concomitant]
     Active Substance: ETHOSUXIMIDE
     Indication: SEIZURE
     Dosage: UNK, 2X/DAY
  25. KLONOPIN [Concomitant]
     Active Substance: CLONAZEPAM
     Indication: EPILEPSY
     Dosage: 1 MG, 1X/DAY
     Route: 048
  26. KLONOPIN [Concomitant]
     Active Substance: CLONAZEPAM
     Dosage: 0.5 MG BID, 0.75 MG QAM, 0.75 MG Q2PM, 1 MG QPM
     Route: 048
     Dates: start: 20150216, end: 20150216
  27. LAMICTAL [Concomitant]
     Active Substance: LAMOTRIGINE
     Dosage: 300 MG, 2X/DAY
     Route: 048
  28. SERTRALINE [Concomitant]
     Active Substance: SERTRALINE HYDROCHLORIDE
     Dosage: 100 MG, DAILY
     Route: 048
  29. SYMBICORT [Concomitant]
     Active Substance: BUDESONIDE\FORMOTEROL FUMARATE DIHYDRATE
     Indication: CHRONIC OBSTRUCTIVE PULMONARY DISEASE
     Dosage: 1 DF, 2X/DAY
     Route: 055
  30. VITAMIN D2 [Concomitant]
     Active Substance: ERGOCALCIFEROL
     Dosage: UNK, DAILY
     Route: 048
  31. COENZYME Q10 [Concomitant]
     Active Substance: UBIDECARENONE
     Indication: HYPERTENSION
     Dosage: 100 MG, DAILY
  32. ZOLOFT [Concomitant]
     Active Substance: SERTRALINE HYDROCHLORIDE
     Indication: DEPRESSION
     Dosage: UNK
     Dates: start: 2017
  33. OXYGEN. [Concomitant]
     Active Substance: OXYGEN
     Indication: CHRONIC OBSTRUCTIVE PULMONARY DISEASE
     Dosage: UNK
     Dates: start: 2015
  34. TEGRETOL [Concomitant]
     Active Substance: CARBAMAZEPINE
     Indication: EPILEPSY
     Dosage: UNK
     Dates: start: 1993, end: 1994
  35. PHENOBARBITAL. [Concomitant]
     Active Substance: PHENOBARBITAL
     Indication: EPILEPSY
     Dosage: UNK
     Dates: start: 1967
  36. DILANTIN [Suspect]
     Active Substance: PHENYTOIN
     Dosage: 500 MG, ON ODD DAYS
  37. ASPIRIN 81 MG [Concomitant]
     Active Substance: ASPIRIN
     Dosage: UNK
     Dates: start: 2015
  38. LIPITOR [Concomitant]
     Active Substance: ATORVASTATIN CALCIUM
     Indication: BLOOD CHOLESTEROL ABNORMAL
     Dosage: 20 MG, DAILY
     Route: 048
  39. KLONOPIN [Concomitant]
     Active Substance: CLONAZEPAM
     Dosage: 2 MG, DAILY
  40. PROTONIX [Concomitant]
     Active Substance: PANTOPRAZOLE SODIUM
     Indication: GASTRIC DISORDER
     Dosage: 40 MG, 2X/DAY
     Route: 048
  41. SPIRIVA [Concomitant]
     Active Substance: TIOTROPIUM BROMIDE MONOHYDRATE
     Dosage: UNK
     Dates: start: 2015
  42. VITAMIN B12 [Concomitant]
     Active Substance: CYANOCOBALAMIN
     Dosage: 250 MG, DAILY
     Route: 048
  43. VITAMIN D3 [Concomitant]
     Active Substance: CHOLECALCIFEROL
     Dosage: UNK
     Dates: start: 2014
  44. MYSOLINE [Concomitant]
     Active Substance: PRIMIDONE
     Indication: EPILEPSY
     Dosage: UNK
     Dates: start: 2017
  45. LORAZEPAM. [Concomitant]
     Active Substance: LORAZEPAM
     Indication: SEIZURE
     Dosage: UNK, 3X/DAY
     Dates: start: 1999, end: 2007
  46. ZARONTIN [Concomitant]
     Active Substance: ETHOSUXIMIDE
     Dosage: 2000 MG, DAILY
  47. ASPIRIN 81 MG [Concomitant]
     Active Substance: ASPIRIN
     Indication: ANTICOAGULANT THERAPY
     Dosage: 81 MG, DAILY
     Route: 048
  48. PROAIR HFA [Concomitant]
     Active Substance: ALBUTEROL SULFATE
     Indication: COUGH
     Dosage: UNK
     Dates: start: 2015
  49. CLONAZEPAM. [Concomitant]
     Active Substance: CLONAZEPAM
     Dosage: UNK, 3X/DAY (1.5 MG QAM, 1.5 MG 2 PM AND 2 MG AT QPM)
     Route: 048
  50. DILANTIN [Suspect]
     Active Substance: PHENYTOIN
     Indication: SEIZURE
     Dosage: UNK
     Route: 048
     Dates: start: 1967, end: 201509
  51. ZARONTIN [Concomitant]
     Active Substance: ETHOSUXIMIDE
     Indication: EPILEPSY
     Dosage: UNK
     Dates: start: 1997
  52. LIPITOR [Concomitant]
     Active Substance: ATORVASTATIN CALCIUM
     Dosage: UNK
     Dates: start: 2014
  53. VITAMIN B12 [Concomitant]
     Active Substance: CYANOCOBALAMIN
     Indication: ROUTINE HEALTH MAINTENANCE
     Dosage: 250 UG, DAILY
     Route: 048
  54. SIMVASTATIN. [Concomitant]
     Active Substance: SIMVASTATIN
     Dosage: 40 MG, DAILY
     Route: 048
  55. COENZYME Q10 [Concomitant]
     Active Substance: UBIDECARENONE
     Indication: CARDIAC DISORDER
     Dosage: UNK
     Dates: start: 2015
  56. VALIUM [Concomitant]
     Active Substance: DIAZEPAM
     Indication: EPILEPSY
     Dosage: UNK
     Dates: start: 1967
  57. LAMOTRIGINE. [Concomitant]
     Active Substance: LAMOTRIGINE
     Indication: EPILEPSY
     Dosage: UNK
     Dates: start: 2014
  58. NEURONTIN [Concomitant]
     Active Substance: GABAPENTIN
     Dosage: UNK
     Dates: start: 1994
  59. DILANTIN [Suspect]
     Active Substance: PHENYTOIN
     Dosage: 400 MG, ON EVEN DAYS
  60. KLONOPIN [Concomitant]
     Active Substance: CLONAZEPAM
     Dosage: UNK
     Dates: start: 1994
  61. PROTONIX [Concomitant]
     Active Substance: PANTOPRAZOLE SODIUM
     Dosage: UNK, AS NEEDED
  62. PERCOCET [Concomitant]
     Active Substance: ACETAMINOPHEN\OXYCODONE HYDROCHLORIDE
     Indication: PAIN
     Dosage: 1 TO 2 EVERY 4 TO 6 HOURS, AS NEEDED
     Route: 048
  63. KEPPRA [Concomitant]
     Active Substance: LEVETIRACETAM
     Dosage: UNK
     Dates: start: 2015
  64. PANTOPRAZOLE [Concomitant]
     Active Substance: PANTOPRAZOLE
     Dosage: 40 MG, DAILY
     Route: 048

REACTIONS (25)
  - Hand fracture [Not Recovered/Not Resolved]
  - Talipes [Unknown]
  - Muscular weakness [Not Recovered/Not Resolved]
  - Loss of personal independence in daily activities [Not Recovered/Not Resolved]
  - Lumbar vertebral fracture [Unknown]
  - Axonal neuropathy [Unknown]
  - Amnesia [Not Recovered/Not Resolved]
  - Coordination abnormal [Not Recovered/Not Resolved]
  - Toxicity to various agents [Unknown]
  - Upper limb fracture [Not Recovered/Not Resolved]
  - Balance disorder [Not Recovered/Not Resolved]
  - Pleural effusion [Unknown]
  - Atelectasis [Unknown]
  - Fall [Not Recovered/Not Resolved]
  - Neuropathy peripheral [Not Recovered/Not Resolved]
  - Foot fracture [Not Recovered/Not Resolved]
  - Cerebellar atrophy [Not Recovered/Not Resolved]
  - Compression fracture [Unknown]
  - Rib fracture [Not Recovered/Not Resolved]
  - Tremor [Not Recovered/Not Resolved]
  - Osteoarthritis [Unknown]
  - Traumatic arthritis [Unknown]
  - Cerebellar ataxia [Not Recovered/Not Resolved]
  - Cerebral small vessel ischaemic disease [Unknown]
  - Aphasia [Not Recovered/Not Resolved]

NARRATIVE: CASE EVENT DATE: 20160225
